FAERS Safety Report 21700315 (Version 1)
Quarter: 2022Q4

REPORT INFORMATION
  Report Type: Spontaneous
  Country: CN (occurrence: CN)
  Receive Date: 20221208
  Receipt Date: 20221208
  Transmission Date: 20230113
  Serious: Yes (Hospitalization)
  Sender: FDA-Public Use
  Company Number: CN-PFIZER INC-PV202200116842

PATIENT
  Age: 12 Month
  Sex: Male
  Weight: 9.5 kg

DRUGS (6)
  1. CYTARABINE [Suspect]
     Active Substance: CYTARABINE
     Indication: Chemotherapy
     Dosage: 0.9 G, 2X/DAY
     Route: 041
     Dates: start: 20221121, end: 20221122
  2. METHOTREXATE [Suspect]
     Active Substance: METHOTREXATE
     Indication: Chemotherapy
     Dosage: 0.008 G, 1X/DAY
     Route: 041
     Dates: start: 20221121, end: 20221121
  3. DASATINIB [Suspect]
     Active Substance: DASATINIB
     Indication: Chemotherapy
     Dosage: 30 MG, 1X/DAY
     Route: 048
     Dates: start: 20221121, end: 20221122
  4. DEXAMETHASONE SODIUM PHOSPHATE [Concomitant]
     Active Substance: DEXAMETHASONE SODIUM PHOSPHATE
     Indication: Antiallergic therapy
     Dosage: 4.5 MG, 2X/DAY
     Route: 041
     Dates: start: 20221121, end: 20221122
  5. OMEPRAZOLE SODIUM [Concomitant]
     Active Substance: OMEPRAZOLE SODIUM
     Indication: Therapeutic procedure
     Dosage: 10 MG, 1X/DAY
     Route: 041
     Dates: start: 20221121, end: 20221122
  6. TROPISETRON HYDROCHLORIDE [Concomitant]
     Active Substance: TROPISETRON HYDROCHLORIDE
     Indication: Prophylaxis of nausea and vomiting
     Dosage: 1 MG, 1X/DAY
     Route: 041
     Dates: start: 20221121, end: 20221122

REACTIONS (1)
  - Granulocyte count decreased [Recovering/Resolving]

NARRATIVE: CASE EVENT DATE: 20221122
